FAERS Safety Report 12843883 (Version 2)
Quarter: 2017Q1

REPORT INFORMATION
  Report Type: Report from Study
  Country: US (occurrence: US)
  Receive Date: 20161013
  Receipt Date: 20170207
  Transmission Date: 20170428
  Serious: Yes (Other)
  Sender: FDA-Public Use
  Company Number: US-JNJFOC-20161009864

PATIENT
  Age: 84 Year
  Sex: Female

DRUGS (4)
  1. IMBRUVICA [Suspect]
     Active Substance: IBRUTINIB
     Indication: CHRONIC LYMPHOCYTIC LEUKAEMIA
     Route: 048
     Dates: start: 201601
  2. ZOLOFT [Concomitant]
     Active Substance: SERTRALINE HYDROCHLORIDE
  3. IMBRUVICA [Suspect]
     Active Substance: IBRUTINIB
     Indication: CHRONIC LYMPHOCYTIC LEUKAEMIA
     Route: 048
     Dates: start: 201508, end: 201601
  4. ASPIRIN. [Concomitant]
     Active Substance: ASPIRIN

REACTIONS (8)
  - Platelet count increased [Unknown]
  - Myocardial infarction [Unknown]
  - Cardiac aneurysm [Unknown]
  - Lymphocyte count increased [Unknown]
  - Vertigo [Unknown]
  - Blood glucose increased [Unknown]
  - White blood cell count increased [Unknown]
  - Bundle branch block right [Unknown]

NARRATIVE: CASE EVENT DATE: 201601
